FAERS Safety Report 5658007-2 (Version None)
Quarter: 2008Q1

REPORT INFORMATION
  Report Type: 
  Country: None (occurrence: None)
  Receive Date: 20080306
  Receipt Date: 20080228
  Transmission Date: 20080703
  Serious: Yes (Other)
  Sender: FDA-Public Use
  Company Number: 163-20785-06090624

PATIENT
  Age: 42 Year
  Sex: Female

DRUGS (2)
  1. THALOMID [Suspect]
     Indication: MULTIPLE MYELOMA
     Dosage: 100 MG, Q HS, ORAL; 100MG-200MG, DAILY, ORAL
     Route: 048
     Dates: start: 20050923, end: 20051209
  2. THALOMID [Suspect]
     Indication: MULTIPLE MYELOMA
     Dosage: 100 MG, Q HS, ORAL; 100MG-200MG, DAILY, ORAL
     Route: 048
     Dates: start: 20060818

REACTIONS (1)
  - BLOOD HUMAN CHORIONIC GONADOTROPIN INCREASED [None]
